FAERS Safety Report 19220890 (Version 2)
Quarter: 2021Q2

REPORT INFORMATION
  Report Type: Spontaneous
  Country: US (occurrence: US)
  Receive Date: 20210506
  Receipt Date: 20210518
  Transmission Date: 20210717
  Serious: No
  Sender: FDA-Public Use
  Company Number: US-BEH-2021131498

PATIENT
  Sex: Female
  Weight: 77.1 kg

DRUGS (1)
  1. HIZENTRA [Suspect]
     Active Substance: HUMAN IMMUNOGLOBULIN G
     Indication: IMMUNODEFICIENCY COMMON VARIABLE
     Dosage: 6 GRAM, QW
     Route: 058
     Dates: start: 20200218

REACTIONS (5)
  - Tooth extraction [Unknown]
  - Weight fluctuation [Unknown]
  - Dental implantation [Unknown]
  - Infection [Unknown]
  - Pruritus [Unknown]
